FAERS Safety Report 21322199 (Version 1)
Quarter: 2022Q3

REPORT INFORMATION
  Report Type: Spontaneous
  Country: US (occurrence: None)
  Receive Date: 20220910
  Receipt Date: 20220910
  Transmission Date: 20221027
  Serious: Yes (Hospitalization)
  Sender: FDA-Public Use
  Company Number: None

PATIENT
  Sex: Male

DRUGS (1)
  1. BACILLUS CALMETTE-GUERIN ANTIGEN, UNSPECIFIED SUBSTRAIN [Suspect]
     Active Substance: BACILLUS CALMETTE-GUERIN ANTIGEN, UNSPECIFIED SUBSTRAIN
     Indication: Bladder cancer
     Dates: start: 20220830, end: 20220830

REACTIONS (1)
  - Guillain-Barre syndrome [None]

NARRATIVE: CASE EVENT DATE: 20220904
